FAERS Safety Report 13087085 (Version 1)
Quarter: 2017Q1

REPORT INFORMATION
  Report Type: Report from Study
  Country: FR (occurrence: FR)
  Receive Date: 20170105
  Receipt Date: 20170105
  Transmission Date: 20170428
  Serious: Yes (Other)
  Sender: FDA-Public Use
  Company Number: FR-ROCHE-1425062

PATIENT
  Age: 54 Year
  Sex: Male
  Weight: 79 kg

DRUGS (13)
  1. CORTANCYL [Concomitant]
     Active Substance: PREDNISONE
     Indication: FACIAL PARALYSIS
     Route: 048
     Dates: start: 20140604, end: 20140616
  2. DOLIPRANE [Concomitant]
     Active Substance: ACETAMINOPHEN
     Indication: HEADACHE
     Route: 048
     Dates: start: 20131013
  3. VITAMINE A DULCIS [Concomitant]
     Indication: EYE IRRITATION
     Route: 047
     Dates: start: 20140604
  4. MOPRAL [Concomitant]
     Active Substance: OMEPRAZOLE SODIUM
     Indication: FACIAL PARALYSIS
     Route: 048
     Dates: start: 20140604
  5. ARTELAC (FRANCE) [Concomitant]
     Indication: EYE IRRITATION
     Route: 047
     Dates: start: 20140604
  6. DOLIPRANE [Concomitant]
     Active Substance: ACETAMINOPHEN
     Route: 048
     Dates: start: 20140205, end: 20140207
  7. COBIMETINIB [Suspect]
     Active Substance: COBIMETINIB
     Indication: METASTATIC MALIGNANT MELANOMA
     Dosage: MOST RECENT DOSE PRIOR TO AE : 14/JAN/2014
     Route: 048
     Dates: start: 20130920
  8. VEMURAFENIB [Suspect]
     Active Substance: VEMURAFENIB
     Indication: METASTATIC MALIGNANT MELANOMA
     Dosage: MOST RECENT DOSE PRIOR TO AE : 14/JAN/2014
     Route: 048
     Dates: start: 20130920
  9. DEXERYL (FRANCE) [Concomitant]
     Active Substance: GLYCERIN\PARAFFIN
     Indication: RASH
     Route: 061
     Dates: start: 20131018
  10. LOCOID [Concomitant]
     Active Substance: HYDROCORTISONE BUTYRATE
     Indication: RASH
     Route: 065
     Dates: start: 20131018
  11. AUGMENTIN [Concomitant]
     Active Substance: AMOXICILLIN\CLAVULANATE POTASSIUM
     Indication: SKIN WOUND
     Route: 048
     Dates: start: 20140207, end: 20140212
  12. ZELITREX [Concomitant]
     Active Substance: VALACYCLOVIR HYDROCHLORIDE
     Indication: FACIAL PARALYSIS
     Route: 048
     Dates: start: 20140604
  13. DIFFU K [Concomitant]
     Active Substance: POTASSIUM CHLORIDE
     Indication: FACIAL PARALYSIS
     Route: 048
     Dates: start: 20140604

REACTIONS (1)
  - Chorioretinitis [Recovered/Resolved]

NARRATIVE: CASE EVENT DATE: 20140114
